FAERS Safety Report 10750608 (Version 1)
Quarter: 2015Q1

REPORT INFORMATION
  Report Type: Spontaneous
  Country: US (occurrence: US)
  Receive Date: 20150130
  Receipt Date: 20150130
  Transmission Date: 20150721
  Serious: Yes (Hospitalization)
  Sender: FDA-Public Use
  Company Number: US-SUN PHARMACEUTICAL INDUSTRIES LTD-2015SUN00257

PATIENT

DRUGS (2)
  1. ISONIAZID/RIFAPENTINE [Interacting]
     Active Substance: ISONIAZID\RIFAPENTINE
     Indication: LATENT TUBERCULOSIS
     Dosage: WEEKLY, RECEIVED 2 DOSES
     Route: 065
  2. AMLODIPINE [Suspect]
     Active Substance: AMLODIPINE BESYLATE
     Indication: HYPERTENSION
     Route: 065

REACTIONS (2)
  - Drug interaction [Unknown]
  - Hypertensive crisis [Unknown]
